FAERS Safety Report 7796385-9 (Version None)
Quarter: 2011Q4

REPORT INFORMATION
  Report Type: 
  Country: None (occurrence: None)
  Receive Date: 20111005
  Receipt Date: 20110922
  Transmission Date: 20120403
  Serious: No
  Sender: FDA-Public Use
  Company Number: US-BIOGENIDEC-2011BI018224

PATIENT
  Age: 52 Year
  Sex: Female

DRUGS (2)
  1. TYSABRI [Suspect]
     Indication: MULTIPLE SCLEROSIS
     Route: 042
     Dates: start: 20110412
  2. AVONEX [Concomitant]
     Indication: MULTIPLE SCLEROSIS
     Route: 030

REACTIONS (8)
  - ABDOMINAL DISTENSION [None]
  - HEADACHE [None]
  - URINARY TRACT INFECTION [None]
  - BACK PAIN [None]
  - PAINFUL RESPIRATION [None]
  - HEPATIC CYST [None]
  - DIARRHOEA [None]
  - FATIGUE [None]
